FAERS Safety Report 7769695-9 (Version None)
Quarter: 2011Q3

REPORT INFORMATION
  Report Type: 
  Country: None (occurrence: None)
  Receive Date: 20110922
  Receipt Date: 20110113
  Transmission Date: 20111222
  Serious: No
  Sender: FDA-Public Use
  Company Number: US-ASTRAZENECA-2011SE02452

PATIENT
  Age: 48 Year
  Sex: Male
  Weight: 121.6 kg

DRUGS (8)
  1. ABILIFY [Concomitant]
     Route: 048
     Dates: start: 20070328
  2. AMARYL [Concomitant]
     Route: 048
     Dates: start: 20070326
  3. TRAZODONE HYDROCHLORIDE [Concomitant]
     Dosage: 150 MG-300MG
     Route: 048
     Dates: start: 20060112
  4. REMERON [Concomitant]
     Route: 048
     Dates: start: 20060112
  5. TOPAMAX [Concomitant]
     Route: 048
     Dates: start: 20070328
  6. AVANDIA [Concomitant]
     Indication: DIABETES MELLITUS
     Dates: start: 20070328
  7. SEROQUEL [Suspect]
     Dosage: 100MG-300MG
     Route: 048
     Dates: start: 20060112, end: 20070328
  8. EFFEXOR XR [Concomitant]
     Route: 048
     Dates: start: 20060502

REACTIONS (12)
  - DIABETES MELLITUS [None]
  - SCHIZOAFFECTIVE DISORDER [None]
  - INSOMNIA [None]
  - VISION BLURRED [None]
  - DEPRESSION [None]
  - BLOOD GLUCOSE INCREASED [None]
  - HYPERLIPIDAEMIA [None]
  - WEIGHT INCREASED [None]
  - HALLUCINATION, AUDITORY [None]
  - BLOOD CHOLESTEROL INCREASED [None]
  - NIGHT SWEATS [None]
  - MYOCARDIAL INFARCTION [None]
